FAERS Safety Report 4447708-X (Version None)
Quarter: 2004Q3

REPORT INFORMATION
  Report Type: 
  Country: None (occurrence: None)
  Receive Date: 20040802
  Receipt Date: 20040526
  Transmission Date: 20050211
  Serious: No
  Sender: FDA-Public Use
  Company Number: 2004-118226-NL

PATIENT
  Age: 19 Year
  Sex: Female
  Weight: 52.2 kg

DRUGS (4)
  1. NUVARING [Suspect]
     Indication: CONTRACEPTION
     Dosage: DF DAILY VAGINAL
     Route: 067
     Dates: start: 20040416
  2. NUVARING [Suspect]
     Indication: MUSCLE CRAMP
     Dosage: DF DAILY VAGINAL
     Route: 067
     Dates: start: 20040416
  3. IBUPROFEN [Concomitant]
  4. ALEVE [Concomitant]

REACTIONS (1)
  - SKIN DISCOLOURATION [None]
